FAERS Safety Report 7860474-0 (Version None)
Quarter: 2011Q4

REPORT INFORMATION
  Report Type: 
  Country: None (occurrence: None)
  Receive Date: 20111027
  Receipt Date: 20111025
  Transmission Date: 20120403
  Serious: Yes (Life-Threatening)
  Sender: FDA-Public Use
  Company Number: PHHY2011IT91452

PATIENT
  Age: 55 Year
  Sex: Female

DRUGS (3)
  1. HYDROCHLOROTHIAZIDE [Concomitant]
  2. FEMARA [Suspect]
     Indication: BREAST MASS
     Dosage: 2.5 MG DAILY
     Route: 048
     Dates: start: 20060706
  3. CANDESARTAN CILEXETIL [Concomitant]

REACTIONS (1)
  - HYPERTENSIVE CRISIS [None]
